FAERS Safety Report 5775890-0 (Version None)
Quarter: 2008Q2

REPORT INFORMATION
  Report Type: 
  Country: None (occurrence: None)
  Receive Date: 20080617
  Receipt Date: 20080603
  Transmission Date: 20081010
  Serious: Yes (Other)
  Sender: FDA-Public Use
  Company Number: US-ELI_LILLY_AND_COMPANY-US200806000748

PATIENT
  Sex: Female

DRUGS (2)
  1. CYMBALTA [Suspect]
     Dosage: 30 MG, UNK
  2. CYMBALTA [Suspect]
     Dosage: 60 MG, UNK

REACTIONS (7)
  - CONVULSION [None]
  - EAR INJURY [None]
  - FEELING ABNORMAL [None]
  - HEAD INJURY [None]
  - INCONTINENCE [None]
  - LIMB INJURY [None]
  - LOSS OF CONSCIOUSNESS [None]
